FAERS Safety Report 7350386-3 (Version None)
Quarter: 2011Q1

REPORT INFORMATION
  Report Type: 
  Country: None (occurrence: None)
  Receive Date: 20110314
  Receipt Date: 20110308
  Transmission Date: 20110831
  Serious: Yes (Hospitalization)
  Sender: FDA-Public Use
  Company Number: US-BRISTOL-MYERS SQUIBB COMPANY-15541311

PATIENT
  Age: 70 Year
  Sex: Female
  Weight: 75 kg

DRUGS (7)
  1. NAPROXEN [Concomitant]
     Indication: ARTHRITIS
     Dosage: EC NAPROXEN
  2. PLAVIX [Concomitant]
     Indication: TRANSIENT ISCHAEMIC ATTACK
     Dosage: AT BEDTIME
     Dates: start: 20090101
  3. AMITRIPTYLINE HCL [Concomitant]
     Indication: DEPRESSION
     Dosage: AT BEDTIME
  4. CYCLOPHOSPHAMIDE [Suspect]
     Indication: BREAST CANCER
     Dosage: RECENT DOSE ON 31JAN11.COURSE NO:C1 DAY1
     Dates: start: 20110131
  5. EXFORGE [Concomitant]
     Indication: HYPERTENSION
     Dosage: 1DF=10/320 UNIT NOT SPECIFIED
  6. METFORMIN [Concomitant]
     Indication: DIABETES MELLITUS
  7. IXABEPILONE [Suspect]
     Indication: BREAST CANCER
     Dosage: RECENT DOSE ON 31JAN11.COURSE NO:C1 DAY1
     Dates: start: 20110131

REACTIONS (1)
  - PYELONEPHRITIS [None]
